FAERS Safety Report 20169804 (Version 11)
Quarter: 2022Q1

REPORT INFORMATION
  Report Type: Report from Study
  Country: IT (occurrence: None)
  Receive Date: 20211210
  Receipt Date: 20220218
  Transmission Date: 20220423
  Serious: Yes (Hospitalization)
  Sender: FDA-Public Use
  Company Number: IT-Eisai Medical Research-EC-2021-104528

PATIENT
  Age: 64 Year
  Sex: Male
  Weight: 70 kg

DRUGS (12)
  1. LENVATINIB [Suspect]
     Active Substance: LENVATINIB
     Indication: Hepatocellular carcinoma
     Route: 048
     Dates: start: 20211104, end: 20211201
  2. LENVATINIB [Suspect]
     Active Substance: LENVATINIB
     Route: 048
     Dates: start: 20211216
  3. PEMBROLIZUMAB [Suspect]
     Active Substance: PEMBROLIZUMAB
     Indication: Hepatocellular carcinoma
     Dosage: 425MG MK-1308A CONTAINS 25 MILLIGRAM QUAVONLIMAB (MK-1308) AND 400 MILLIGRAM PEMBROLIZUMAB (MK-3475)
     Route: 041
     Dates: start: 20211104, end: 20211104
  4. QUAVONLIMAB [Suspect]
     Active Substance: QUAVONLIMAB
     Dosage: 425MG MK-1308A CONTAINS 25 MILLIGRAM QUAVONLIMAB (MK-1308) AND 400 MILLIGRAM PEMBROLIZUMAB (MK-3475)
     Route: 041
     Dates: start: 20220127
  5. FOLIC ACID [Concomitant]
     Active Substance: FOLIC ACID
     Dates: start: 202110
  6. RAMIPRIL [Concomitant]
     Active Substance: RAMIPRIL
     Dates: start: 202110
  7. BISOPROLOL FUMARATE [Concomitant]
     Active Substance: BISOPROLOL FUMARATE
     Dates: start: 202110
  8. METFORMIN HYDROCHLORIDE [Concomitant]
     Active Substance: METFORMIN HYDROCHLORIDE
     Dates: start: 202110
  9. ESOMEPRAZOLE [Concomitant]
     Active Substance: ESOMEPRAZOLE
     Dates: start: 202110
  10. MAGNESIUM [Concomitant]
     Active Substance: MAGNESIUM
     Dates: start: 20211119
  11. ACETAMINOPHEN [Concomitant]
     Active Substance: ACETAMINOPHEN
     Dates: start: 20211128, end: 20211128
  12. AMLODIPINE BESYLATE [Concomitant]
     Active Substance: AMLODIPINE BESYLATE
     Dates: start: 202110

REACTIONS (1)
  - Myalgia [Recovered/Resolved]

NARRATIVE: CASE EVENT DATE: 20211129
